FAERS Safety Report 7559447-7 (Version None)
Quarter: 2011Q2

REPORT INFORMATION
  Report Type: 
  Country: None (occurrence: None)
  Receive Date: 20110621
  Receipt Date: 20110614
  Transmission Date: 20111010
  Serious: Yes (Life-Threatening, Hospitalization, Other)
  Sender: FDA-Public Use
  Company Number: JP-BRISTOL-MYERS SQUIBB COMPANY-15448103

PATIENT
  Age: 45 Year
  Sex: Female

DRUGS (16)
  1. HUSCODE [Concomitant]
     Indication: NASOPHARYNGITIS
     Route: 048
     Dates: start: 20101117, end: 20101125
  2. CARTEOLOL HYDROCHLORIDE [Concomitant]
     Indication: GLAUCOMA
     Dosage: MIKELAN LA
     Dates: start: 20100401
  3. CEFOTIAM HYDROCHLORIDE [Concomitant]
     Dosage: KIT.
     Dates: start: 20101120, end: 20101124
  4. AVAPRO [Suspect]
     Indication: HYPERTENSION
     Route: 048
     Dates: start: 20101016, end: 20101125
  5. PELEX [Concomitant]
     Indication: NASOPHARYNGITIS
     Route: 048
     Dates: start: 20101117, end: 20101125
  6. MYDRIN P [Concomitant]
     Indication: GLAUCOMA
     Dates: start: 20100401
  7. LEVOFLOXACIN [Concomitant]
     Indication: PNEUMONIA
     Route: 048
     Dates: start: 20101118, end: 20101120
  8. GENINAX [Concomitant]
     Indication: PNEUMONIA
     Route: 048
     Dates: start: 20101120, end: 20101125
  9. SOLULACT [Concomitant]
     Dates: start: 20101118, end: 20101121
  10. DOYLE [Concomitant]
     Dates: start: 20101118, end: 20101119
  11. AMLODIPINE [Concomitant]
     Indication: HYPERTENSION
     Route: 048
     Dates: start: 20100401, end: 20101125
  12. CHONDROITIN SULFATE + GLUCOSAMINE [Concomitant]
     Dosage: DURATION OF THERAPY:2-3 DAYS
     Dates: start: 20101018
  13. MUCODYNE [Concomitant]
     Indication: PNEUMONIA
     Route: 048
     Dates: start: 20101120, end: 20101125
  14. LOBU [Concomitant]
     Indication: PNEUMONIA
     Route: 048
     Dates: start: 20101120, end: 20101125
  15. THEO-DUR [Concomitant]
     Indication: PNEUMONIA
     Route: 048
     Dates: start: 20101120, end: 20101125
  16. AMINOPHYLLIN TAB [Concomitant]
     Dosage: AMINOPHYLLINE HYDRATE .1DF= 0.5 UNIT NOS.
     Dates: start: 20101118, end: 20101121

REACTIONS (3)
  - CEREBRAL INFARCTION [None]
  - RESPIRATORY FAILURE [None]
  - LUNG DISORDER [None]
